FAERS Safety Report 8069148-7 (Version None)
Quarter: 2012Q1

REPORT INFORMATION
  Report Type: 
  Country: None (occurrence: None)
  Receive Date: 20120125
  Receipt Date: 20120120
  Transmission Date: 20120608
  Serious: No
  Sender: FDA-Public Use
  Company Number: US-PFIZER INC-2012017361

PATIENT
  Sex: Female
  Weight: 118 kg

DRUGS (2)
  1. NORVASC [Suspect]
     Indication: HYPERTENSION
     Dosage: 5 MG, DAILY
     Dates: start: 20111222, end: 20120101
  2. FELDENE [Concomitant]
     Indication: ARTHRITIS
     Dosage: 40 MG, DAILY

REACTIONS (3)
  - OEDEMA PERIPHERAL [None]
  - SKIN DISORDER [None]
  - DRY SKIN [None]
